FAERS Safety Report 8391383-9 (Version None)
Quarter: 2012Q2

REPORT INFORMATION
  Report Type: 
  Country: None (occurrence: None)
  Receive Date: 20120529
  Receipt Date: 20120515
  Transmission Date: 20120825
  Serious: No
  Sender: FDA-Public Use
  Company Number: US-JNJFOC-20120514674

PATIENT
  Sex: Female
  Weight: 43.55 kg

DRUGS (2)
  1. DURAGESIC-100 [Suspect]
     Indication: FATIGUE
     Route: 062
     Dates: start: 20120401
  2. DURAGESIC-100 [Suspect]
     Indication: FIBROMYALGIA
     Route: 062
     Dates: start: 20120401

REACTIONS (1)
  - DRUG ADMINISTERED AT INAPPROPRIATE SITE [None]
